FAERS Safety Report 9396211 (Version 1)
Quarter: 2013Q3

REPORT INFORMATION
  Report Type: Report from Study
  Country: GB (occurrence: GB)
  Receive Date: 20130711
  Receipt Date: 20130711
  Transmission Date: 20140515
  Serious: Yes (Hospitalization)
  Sender: FDA-Public Use
  Company Number: GB-BAXTER-2013BAX025802

PATIENT
  Age: 55 Year
  Sex: Female

DRUGS (16)
  1. CYCLOPHOSPHAMIDE INJECTION 1G [Suspect]
     Indication: B-CELL LYMPHOMA
     Route: 042
     Dates: start: 20130123
  2. CYCLOPHOSPHAMIDE INJECTION 1G [Suspect]
     Route: 042
     Dates: start: 20130529
  3. MONOCLONAL ANTIBODIES [Suspect]
     Indication: B-CELL LYMPHOMA
     Route: 042
     Dates: start: 20130123
  4. VINCRISTINE SULFATE [Suspect]
     Indication: B-CELL LYMPHOMA
     Route: 042
     Dates: start: 20130123
  5. VINCRISTINE SULFATE [Suspect]
     Route: 042
     Dates: start: 20130529
  6. PREDNISONE [Suspect]
     Indication: B-CELL LYMPHOMA
     Route: 065
     Dates: start: 20130123
  7. PREDNISONE [Suspect]
     Route: 065
     Dates: start: 20130504
  8. CHLORPHENIRAMINE MALEATE [Concomitant]
     Indication: PREMEDICATION
     Route: 065
     Dates: start: 20130123
  9. DALTEPARIN SODIUM [Concomitant]
     Indication: PULMONARY EMBOLISM
     Route: 065
     Dates: start: 20130308
  10. MACROGOL [Concomitant]
     Indication: CONSTIPATION
     Route: 065
  11. MORPHINE SULFATE [Concomitant]
     Indication: ABDOMINAL PAIN LOWER
     Route: 065
  12. ORAMORPH [Concomitant]
     Indication: ABDOMINAL PAIN LOWER
     Route: 065
  13. PARACETAMOL [Concomitant]
     Indication: PREMEDICATION
     Route: 065
     Dates: start: 20130123
  14. PREGABALIN [Concomitant]
     Indication: ABDOMINAL PAIN LOWER
     Route: 065
  15. SENOKOT [Concomitant]
     Indication: CONSTIPATION
     Route: 065
  16. RITUXIMAB [Concomitant]
     Indication: PRODUCT USED FOR UNKNOWN INDICATION
     Route: 065

REACTIONS (1)
  - Sepsis [Recovering/Resolving]
